FAERS Safety Report 15683961 (Version 1)
Quarter: 2018Q4

REPORT INFORMATION
  Report Type: Spontaneous
  Country: US (occurrence: US)
  Receive Date: 20181204
  Receipt Date: 20181204
  Transmission Date: 20190205
  Serious: Yes (Death, Hospitalization)
  Sender: FDA-Public Use
  Company Number: US-TEVA-2018-US-983293

PATIENT
  Age: 86 Year
  Sex: Male

DRUGS (7)
  1. METOPROLOL. [Concomitant]
     Active Substance: METOPROLOL
     Route: 065
  2. LATANOPROST. [Concomitant]
     Active Substance: LATANOPROST
     Route: 047
  3. MEROPENEM. [Concomitant]
     Active Substance: MEROPENEM
     Indication: PULMONARY NOCARDIOSIS
     Route: 042
  4. PEMBROLIZUMAB. [Suspect]
     Active Substance: PEMBROLIZUMAB
     Indication: METASTATIC SQUAMOUS CELL CARCINOMA
     Route: 065
  5. AMIODARONE [Concomitant]
     Active Substance: AMIODARONE
     Route: 065
  6. PEMBROLIZUMAB. [Suspect]
     Active Substance: PEMBROLIZUMAB
     Indication: IMMUNOSUPPRESSANT DRUG THERAPY
  7. COTRIMOXAZOLE [Suspect]
     Active Substance: SULFAMETHOXAZOLE\TRIMETHOPRIM
     Indication: PULMONARY NOCARDIOSIS
     Route: 042

REACTIONS (3)
  - Hyponatraemia [Unknown]
  - Hyperkalaemia [Unknown]
  - Pulmonary nocardiosis [Fatal]
